FAERS Safety Report 7126738-3 (Version None)
Quarter: 2010Q4

REPORT INFORMATION
  Report Type: 
  Country: None (occurrence: None)
  Receive Date: 20101129
  Receipt Date: 20101126
  Transmission Date: 20110411
  Serious: Yes (Life-Threatening, Hospitalization)
  Sender: FDA-Public Use
  Company Number: PHHO2003ES07196

PATIENT
  Sex: Male
  Weight: 54 kg

DRUGS (1)
  1. STI571/CGP57148B T35717+CAPS [Suspect]
     Indication: GASTROINTESTINAL STROMAL TUMOUR
     Dosage: 800 MG, QD
     Route: 048
     Dates: start: 20010808, end: 20040202

REACTIONS (11)
  - ABDOMINAL DISCOMFORT [None]
  - ABDOMINAL PAIN [None]
  - CHOLECYSTECTOMY [None]
  - COLECTOMY [None]
  - DISCOMFORT [None]
  - DUODENAL FISTULA [None]
  - INTESTINAL FISTULA REPAIR [None]
  - JEJUNECTOMY [None]
  - LAPAROTOMY [None]
  - LOCALISED INFECTION [None]
  - PAIN [None]
